FAERS Safety Report 5098190-3 (Version None)
Quarter: 2006Q3

REPORT INFORMATION
  Report Type: 
  Country: None (occurrence: None)
  Receive Date: 20060906
  Receipt Date: 20060524
  Transmission Date: 20061208
  Serious: No
  Sender: FDA-Public Use
  Company Number: US-GLAXOSMITHKLINE-A0606821A

PATIENT
  Sex: Female

DRUGS (10)
  1. REQUIP [Suspect]
     Indication: RESTLESS LEGS SYNDROME
     Dosage: 2MG PER DAY
     Route: 048
  2. FERROUS SULFATE TAB [Concomitant]
  3. QUININE SULFATE [Concomitant]
  4. ALLEGRA [Concomitant]
  5. ACIPHEX [Concomitant]
  6. PROZAC [Concomitant]
  7. WELLBUTRIN XL [Concomitant]
  8. ABILIFY [Concomitant]
  9. SYNTHROID [Concomitant]
  10. CYTOMEL [Concomitant]

REACTIONS (3)
  - DIARRHOEA [None]
  - DRUG INEFFECTIVE [None]
  - FLATULENCE [None]
